FAERS Safety Report 12001457 (Version 1)
Quarter: 2016Q1

REPORT INFORMATION
  Report Type: Spontaneous
  Country: CA (occurrence: CA)
  Receive Date: 20160204
  Receipt Date: 20160204
  Transmission Date: 20160526
  Serious: Yes (Disabling)
  Sender: FDA-Public Use
  Company Number: PHHY2016CA011172

PATIENT
  Age: 83 Year
  Sex: Male
  Weight: 90 kg

DRUGS (2)
  1. METOCLOPRAMIDE HYDROCHLORIDE SANDOZ [Suspect]
     Active Substance: METOCLOPRAMIDE HYDROCHLORIDE
     Indication: NAUSEA
     Dosage: 10 MG, ONCE/SINGLE
     Route: 042
  2. ZOFRAN [Concomitant]
     Active Substance: ONDANSETRON HYDROCHLORIDE
     Indication: PRODUCT USED FOR UNKNOWN INDICATION
     Route: 065

REACTIONS (7)
  - Hypoaesthesia [Unknown]
  - Dyskinesia [Unknown]
  - Vomiting [Unknown]
  - Pain [Unknown]
  - Joint contracture [Unknown]
  - Paraesthesia [Unknown]
  - Dystonia [Unknown]
